FAERS Safety Report 19659820 (Version 6)
Quarter: 2022Q1

REPORT INFORMATION
  Report Type: Other
  Country: GB (occurrence: GB)
  Receive Date: 20210805
  Receipt Date: 20220104
  Transmission Date: 20220423
  Serious: Yes (Other)
  Sender: FDA-Public Use
  Company Number: GB-TAKEDA-2020TUS037518

PATIENT

DRUGS (17)
  1. COTRIMOXAZOLE [Suspect]
     Active Substance: SULFAMETHOXAZOLE\TRIMETHOPRIM
     Indication: Product used for unknown indication
     Dosage: UNK
     Route: 065
  2. COTRIMOXAZOLE [Suspect]
     Active Substance: SULFAMETHOXAZOLE\TRIMETHOPRIM
     Dosage: 50 MG, 50 MILLIGRAMREPORTED: THERAPY START DATE / THERAPY END
     Route: 065
  3. DEXAMETHASONE [Suspect]
     Active Substance: DEXAMETHASONE
     Indication: Product used for unknown indication
     Dosage: 40 MILLIGRAM40 MILLIGRAM REPORTED: THERAPY START DATE / THERAPY END DATE ASKED BUT UNKNOWN
     Route: 065
  4. DEXAMETHASONE [Suspect]
     Active Substance: DEXAMETHASONE
     Dosage: 40 MG
     Route: 065
  5. ACYCLOVIR [Suspect]
     Active Substance: ACYCLOVIR
     Indication: Product used for unknown indication
     Dosage: 200 MILLIGRAM
     Route: 065
  6. FLUCONAZOLE [Suspect]
     Active Substance: FLUCONAZOLE
     Indication: Product used for unknown indication
     Dosage: 50 MILLIGRAM, 50 MILLIGRAM REPORTED: THERAPY START DATE / THERAPY END DATE ASKED BUT UNKNOWN
     Route: 065
  7. REVLIMID [Suspect]
     Active Substance: LENALIDOMIDE
     Indication: Product used for unknown indication
     Dosage: 10 MILLIGRAM
     Route: 048
  8. REVLIMID [Suspect]
     Active Substance: LENALIDOMIDE
     Dosage: 10 MILLIGRAM
     Route: 048
  9. REVLIMID [Suspect]
     Active Substance: LENALIDOMIDE
     Dosage: 10 MILLIGRAM
     Route: 048
  10. LANSOPRAZOLE [Suspect]
     Active Substance: LANSOPRAZOLE
     Indication: Gastrooesophageal reflux disease
     Dosage: 30 MILLIGRAM
     Route: 065
  11. IXAZOMIB CITRATE [Suspect]
     Active Substance: IXAZOMIB CITRATE
     Indication: Product used for unknown indication
     Dosage: 3 MG
     Route: 048
  12. IXAZOMIB CITRATE [Suspect]
     Active Substance: IXAZOMIB CITRATE
     Dosage: 3 MG
     Route: 065
  13. NINLARO [Suspect]
     Active Substance: IXAZOMIB CITRATE
     Indication: Product used for unknown indication
     Dosage: 3 MILLIGRAM
     Route: 048
  14. NINLARO [Suspect]
     Active Substance: IXAZOMIB CITRATE
     Dosage: 3 MILLIGRAM
     Route: 065
  15. TRIMETHOPRIM [Suspect]
     Active Substance: TRIMETHOPRIM
     Indication: Product used for unknown indication
     Dosage: UNK
     Route: 065
  16. SULFAMETHOXAZOLE [Suspect]
     Active Substance: SULFAMETHOXAZOLE
     Indication: Product used for unknown indication
     Dosage: UNK
     Route: 065
  17. IXAZOMIB [Concomitant]
     Active Substance: IXAZOMIB
     Indication: Product used for unknown indication
     Dosage: 3 MG
     Route: 048

REACTIONS (1)
  - Full blood count decreased [Unknown]
